FAERS Safety Report 14999684 (Version 1)
Quarter: 2018Q2

REPORT INFORMATION
  Report Type: Report from Study
  Country: US (occurrence: US)
  Receive Date: 20180612
  Receipt Date: 20180612
  Transmission Date: 20180711
  Serious: Yes (Hospitalization, Other)
  Sender: FDA-Public Use
  Company Number: US-ROCHE-2050908

PATIENT
  Age: 5 Year
  Sex: Female
  Weight: 29.4 kg

DRUGS (15)
  1. LEVOTHYROXINE. [Concomitant]
     Active Substance: LEVOTHYROXINE
     Route: 065
  2. LEVOTHYROXINE. [Concomitant]
     Active Substance: LEVOTHYROXINE
     Route: 065
  3. LEVOTHYROXINE. [Concomitant]
     Active Substance: LEVOTHYROXINE
     Route: 065
  4. NITROFURANTOIN. [Concomitant]
     Active Substance: NITROFURANTOIN
  5. LEVOTHYROXINE. [Concomitant]
     Active Substance: LEVOTHYROXINE
     Route: 065
  6. DETROL [Concomitant]
     Active Substance: TOLTERODINE TARTRATE
  7. HYDROCORTISONE. [Concomitant]
     Active Substance: HYDROCORTISONE
     Dosage: STRESS DOSE
     Route: 048
  8. NUTROPIN AQ [Suspect]
     Active Substance: SOMATROPIN
     Indication: GROWTH HORMONE DEFICIENCY
     Route: 058
  9. NUTROPIN AQ [Suspect]
     Active Substance: SOMATROPIN
     Indication: BODY HEIGHT BELOW NORMAL
  10. HYDROCORTISONE. [Concomitant]
     Active Substance: HYDROCORTISONE
     Dosage: 5 MG IN MORNING AND 5 MG IN EVENING
     Route: 048
  11. CALCIUM CARBONATE. [Concomitant]
     Active Substance: CALCIUM CARBONATE
     Route: 048
  12. NUTROPIN AQ [Suspect]
     Active Substance: SOMATROPIN
     Indication: POSTOPERATIVE HYPOPITUITARISM
     Route: 058
  13. CHOLECALCIFEROL [Concomitant]
     Active Substance: CHOLECALCIFEROL
     Route: 048
  14. LEVOTHYROXINE. [Concomitant]
     Active Substance: LEVOTHYROXINE
     Route: 065
  15. CALCIUM CARBONATE. [Concomitant]
     Active Substance: CALCIUM CARBONATE
     Route: 048

REACTIONS (25)
  - Musculoskeletal discomfort [Unknown]
  - Increased appetite [Unknown]
  - Urinary tract infection [Not Recovered/Not Resolved]
  - Visual impairment [Recovering/Resolving]
  - Decreased appetite [Unknown]
  - Urine leukocyte esterase positive [Unknown]
  - Chronic kidney disease [Unknown]
  - Excessive cerumen production [Unknown]
  - Ill-defined disorder [Unknown]
  - White matter lesion [Unknown]
  - Blood thyroid stimulating hormone increased [Unknown]
  - Fatigue [Unknown]
  - Mood swings [Unknown]
  - Protein urine present [Unknown]
  - Muscle spasms [Not Recovered/Not Resolved]
  - Cortisol decreased [Unknown]
  - Chromaturia [Unknown]
  - Insulin-like growth factor decreased [Unknown]
  - Insulin-like growth factor increased [Unknown]
  - Neurogenic bladder [Not Recovered/Not Resolved]
  - Hair disorder [Unknown]
  - Cortisol decreased [Unknown]
  - Muscular weakness [Unknown]
  - Hair growth abnormal [Unknown]
  - Insomnia [Unknown]

NARRATIVE: CASE EVENT DATE: 20150708
